FAERS Safety Report 5463915-1 (Version None)
Quarter: 2007Q3

REPORT INFORMATION
  Report Type: 
  Country: None (occurrence: None)
  Receive Date: 20070919
  Receipt Date: 20070907
  Transmission Date: 20080115
  Serious: Yes (Other)
  Sender: FDA-Public Use
  Company Number: 230260M07USA

PATIENT
  Age: 54 Year
  Sex: Female
  Weight: 61.6892 kg

DRUGS (1)
  1. REBIF [Suspect]
     Indication: MULTIPLE SCLEROSIS
     Dates: start: 20050701, end: 20070907

REACTIONS (3)
  - CONVULSION [None]
  - GRANULOMA [None]
  - PULMONARY GRANULOMA [None]
